FAERS Safety Report 5737476-3 (Version None)
Quarter: 2008Q2

REPORT INFORMATION
  Report Type: 
  Country: None (occurrence: None)
  Receive Date: 20080514
  Receipt Date: 20080415
  Transmission Date: 20081010
  Serious: No
  Sender: FDA-Public Use
  Company Number: US-BRISTOL-MYERS SQUIBB COMPANY-14153316

PATIENT
  Age: 53 Year
  Sex: Female

DRUGS (2)
  1. IXEMPRA KIT [Suspect]
     Indication: BREAST CANCER METASTATIC
     Dosage: TOTALLY 4CYCLES, 4TH CYCLE ON 11APR08
  2. XELODA [Suspect]
     Indication: BREAST CANCER METASTATIC

REACTIONS (1)
  - PALMAR-PLANTAR ERYTHRODYSAESTHESIA SYNDROME [None]
